FAERS Safety Report 17268125 (Version 1)
Quarter: 2020Q1

REPORT INFORMATION
  Report Type: Spontaneous
  Country: US (occurrence: US)
  Receive Date: 20200113
  Receipt Date: 20200113
  Transmission Date: 20200409
  Serious: Yes (Hospitalization)
  Sender: FDA-Public Use
  Company Number: None

PATIENT
  Age: 30 Year
  Sex: Female

DRUGS (5)
  1. XELJANZ [Suspect]
     Active Substance: TOFACITINIB CITRATE
     Route: 048
     Dates: start: 20020110
  2. LEXAPRO [Concomitant]
     Active Substance: ESCITALOPRAM OXALATE
  3. RIZATRI PTAN [Concomitant]
  4. XANAX XI [Concomitant]
  5. IORYNA [Concomitant]

REACTIONS (4)
  - Weight increased [None]
  - Diarrhoea [None]
  - Muscle spasms [None]
  - Flatulence [None]

NARRATIVE: CASE EVENT DATE: 20190801
